FAERS Safety Report 21393045 (Version 1)
Quarter: 2022Q3

REPORT INFORMATION
  Report Type: Spontaneous
  Country: US (occurrence: None)
  Receive Date: 20220928
  Receipt Date: 20220928
  Transmission Date: 20221026
  Serious: Yes (Other)
  Sender: FDA-Public Use
  Company Number: None

PATIENT
  Age: 19 Year
  Sex: Female

DRUGS (6)
  1. DUPIXENT [Suspect]
     Active Substance: DUPILUMAB
     Indication: Dermatitis atopic
     Dosage: OTHER FREQUENCY : ONCE (LOADING DOSE;?
     Route: 058
     Dates: start: 20220705, end: 20220705
  2. METRONIDAZOLE [Concomitant]
     Active Substance: METRONIDAZOLE
  3. TYLENOL [Concomitant]
     Active Substance: ACETAMINOPHEN
  4. CLOBETASOL [Concomitant]
     Active Substance: CLOBETASOL
  5. NAPROXEN [Concomitant]
     Active Substance: NAPROXEN
  6. TRIAMCINOLONE [Concomitant]
     Active Substance: TRIAMCINOLONE

REACTIONS (5)
  - Adverse reaction [None]
  - Petechiae [None]
  - Pruritus [None]
  - Eye pain [None]
  - Oral pain [None]

NARRATIVE: CASE EVENT DATE: 20220707
